FAERS Safety Report 6696165-1 (Version None)
Quarter: 2010Q2

REPORT INFORMATION
  Report Type: 
  Country: None (occurrence: None)
  Receive Date: 20100426
  Receipt Date: 20090331
  Transmission Date: 20101027
  Serious: No
  Sender: FDA-Public Use
  Company Number: A0776394A

PATIENT
  Age: 57 Year
  Sex: Female

DRUGS (3)
  1. IMITREX [Suspect]
     Indication: MIGRAINE
     Route: 045
     Dates: start: 19980101, end: 19980101
  2. AMERGE [Suspect]
     Indication: MIGRAINE
     Route: 048
     Dates: start: 20090301
  3. NO CONCURRENT MEDICATION [Concomitant]

REACTIONS (5)
  - EXPIRED DRUG ADMINISTERED [None]
  - FEELING ABNORMAL [None]
  - SLUGGISHNESS [None]
  - SOMNOLENCE [None]
  - THERAPEUTIC RESPONSE DELAYED [None]
